FAERS Safety Report 8660791 (Version 2)
Quarter: 2013Q2

REPORT INFORMATION
  Report Type: Spontaneous
  Country: US (occurrence: US)
  Receive Date: 20120711
  Receipt Date: 20130417
  Transmission Date: 20140414
  Serious: Yes (Hospitalization, Other)
  Sender: FDA-Public Use
  Company Number: US-ASTRAZENECA-2012SE44733

PATIENT
  Age: 55 Year
  Sex: Male
  Weight: 143.8 kg

DRUGS (4)
  1. CRESTOR [Suspect]
     Indication: BLOOD CHOLESTEROL INCREASED
     Route: 048
  2. NEURONTIN [Concomitant]
     Indication: DIABETIC NEUROPATHY
     Route: 048
     Dates: start: 1994
  3. ACTOS [Concomitant]
     Indication: DIABETES MELLITUS
     Dosage: DAILY
  4. OTHER MEDICATIONS BUT DOES NOT HAVE LIST [Concomitant]

REACTIONS (6)
  - Cerebral haemorrhage [Unknown]
  - Abscess [Unknown]
  - Cerebrovascular accident [Unknown]
  - Infarction [Unknown]
  - Neuropathy peripheral [Unknown]
  - Memory impairment [Unknown]
